FAERS Safety Report 16404049 (Version 1)
Quarter: 2019Q2

REPORT INFORMATION
  Report Type: Spontaneous
  Country: FR (occurrence: FR)
  Receive Date: 20190607
  Receipt Date: 20190607
  Transmission Date: 20190711
  Serious: Yes (Hospitalization, Other)
  Sender: FDA-Public Use
  Company Number: FR-AUROBINDO-AUR-APL-2019-031484

PATIENT

DRUGS (2)
  1. MIRTAZAPINE. [Suspect]
     Active Substance: MIRTAZAPINE
     Indication: DEPRESSION
     Dosage: 30 MILLIGRAM, ONCE A DAY
     Route: 048
     Dates: end: 20180726
  2. OLANZAPINE. [Suspect]
     Active Substance: OLANZAPINE
     Indication: DEPRESSION
     Dosage: 20 MILLIGRAM, ONCE A DAY
     Route: 048
     Dates: end: 20180726

REACTIONS (3)
  - Neuroleptic malignant syndrome [Recovered/Resolved]
  - Disorientation [Recovered/Resolved]
  - Confusional state [Recovered/Resolved]

NARRATIVE: CASE EVENT DATE: 20180725
